FAERS Safety Report 7783986-7 (Version None)
Quarter: 2011Q3

REPORT INFORMATION
  Report Type: 
  Country: None (occurrence: None)
  Receive Date: 20110928
  Receipt Date: 20110326
  Transmission Date: 20111222
  Serious: No
  Sender: FDA-Public Use
  Company Number: US-MYLANLABS-2011S1006443

PATIENT
  Sex: Male

DRUGS (1)
  1. FLUOXETINE HCL [Suspect]

REACTIONS (1)
  - RASH [None]
